FAERS Safety Report 24286155 (Version 1)
Quarter: 2024Q3

REPORT INFORMATION
  Report Type: Spontaneous
  Country: NL (occurrence: NL)
  Receive Date: 20240905
  Receipt Date: 20240905
  Transmission Date: 20241016
  Serious: Yes (Other)
  Sender: ROCHE
  Company Number: NL-ROCHE-10000068600

PATIENT
  Age: 11 Year

DRUGS (2)
  1. AVASTIN [Suspect]
     Active Substance: BEVACIZUMAB
     Indication: Arteriovenous malformation
     Route: 065
     Dates: start: 20240627
  2. AVASTIN [Suspect]
     Active Substance: BEVACIZUMAB
     Indication: Hypoxia

REACTIONS (2)
  - Off label use [Unknown]
  - Hip fracture [Unknown]
